FAERS Safety Report 9231351 (Version 1)
Quarter: 2013Q2

REPORT INFORMATION
  Report Type: Spontaneous
  Country: US (occurrence: US)
  Receive Date: 20130415
  Receipt Date: 20130415
  Transmission Date: 20140414
  Serious: Yes (Hospitalization, Other)
  Sender: FDA-Public Use
  Company Number: US-BAYER-2013-044526

PATIENT
  Age: 48 Year
  Sex: Female

DRUGS (5)
  1. SAFYRAL [Suspect]
     Dosage: UNK
     Dates: start: 20110411, end: 20110423
  2. LEVAQUIN [Concomitant]
  3. LASIX [Concomitant]
  4. NADOLOL [Concomitant]
  5. HYDROCODONE [Concomitant]

REACTIONS (10)
  - Intestinal ischaemia [None]
  - Gastrointestinal necrosis [None]
  - Clostridium difficile infection [None]
  - Mesenteric vein thrombosis [None]
  - Intestinal ischaemia [None]
  - Pulmonary embolism [None]
  - Intestinal obstruction [None]
  - Ileus [None]
  - Colitis [None]
  - Enteritis [None]
